FAERS Safety Report 12898734 (Version 1)
Quarter: 2016Q4

REPORT INFORMATION
  Report Type: Spontaneous
  Country: DE (occurrence: DE)
  Receive Date: 20161101
  Receipt Date: 20161101
  Transmission Date: 20170207
  Serious: Yes (Other)
  Sender: FDA-Public Use
  Company Number: DE-DRREDDYS-GER/GER/16/0084391

PATIENT
  Age: 31 Day
  Sex: Female
  Weight: 122 kg

DRUGS (2)
  1. LAMOTRIGINE. [Suspect]
     Active Substance: LAMOTRIGINE
     Indication: EPILEPSY
     Dosage: 400 (MG/D)/ INITIAL DOSAGE 100MG/D, FROM GW 11+1 200MG/D, FROM GW 19+6 400MG/D
     Route: 048
     Dates: start: 20151014, end: 20160711
  2. FOLIO FORTE (NEM) [Concomitant]
     Indication: PROPHYLAXIS OF NEURAL TUBE DEFECT
     Route: 048
     Dates: start: 20151014, end: 20160711

REACTIONS (3)
  - Generalised tonic-clonic seizure [Unknown]
  - Oligohydramnios [Recovered/Resolved]
  - Exposure during pregnancy [Recovered/Resolved]
